FAERS Safety Report 23210904 (Version 1)
Quarter: 2023Q4

REPORT INFORMATION
  Report Type: Spontaneous
  Country: SK (occurrence: SK)
  Receive Date: 20231121
  Receipt Date: 20231121
  Transmission Date: 20240110
  Serious: Yes (Other)
  Sender: FDA-Public Use
  Company Number: SK-TEVA-2023-SK-2948726

PATIENT
  Age: 31 Year
  Sex: Male

DRUGS (3)
  1. VALPROIC ACID [Suspect]
     Active Substance: VALPROIC ACID
     Indication: Frontal lobe epilepsy
     Dosage: 1500 MILLIGRAM DAILY; TRIPLE COMBINATION
     Route: 065
  2. LACOSAMIDE [Concomitant]
     Active Substance: LACOSAMIDE
     Indication: Frontal lobe epilepsy
     Dosage: 400 MILLIGRAM DAILY; TRIPLE COMBINATION
     Route: 065
  3. PERAMPANEL [Concomitant]
     Active Substance: PERAMPANEL
     Indication: Frontal lobe epilepsy
     Dosage: 12 MILLIGRAM DAILY; TRIPLE COMBINATION
     Route: 065

REACTIONS (3)
  - Psychomotor skills impaired [Recovered/Resolved]
  - Dysarthria [Recovered/Resolved]
  - Weight increased [Recovered/Resolved]
